FAERS Safety Report 16143422 (Version 3)
Quarter: 2019Q2

REPORT INFORMATION
  Report Type: Report from Study
  Country: US (occurrence: US)
  Receive Date: 20190401
  Receipt Date: 20190516
  Transmission Date: 20190711
  Serious: Yes (Other)
  Sender: FDA-Public Use
  Company Number: PHEH2019US012959

PATIENT
  Sex: Female

DRUGS (1)
  1. ENTRESTO [Suspect]
     Active Substance: SACUBITRIL\VALSARTAN
     Indication: PRODUCT USED FOR UNKNOWN INDICATION
     Route: 048

REACTIONS (12)
  - Fatigue [Unknown]
  - Cardiac dysfunction [Recovering/Resolving]
  - Cardiomyopathy [Recovering/Resolving]
  - Road traffic accident [Unknown]
  - Palpitations [Unknown]
  - Ligament sprain [Unknown]
  - Dehydration [Unknown]
  - Compression fracture [Unknown]
  - Fall [Unknown]
  - Pneumonia [Unknown]
  - Malaise [Unknown]
  - Syncope [Unknown]
